FAERS Safety Report 7342690-X (Version None)
Quarter: 2011Q1

REPORT INFORMATION
  Report Type: 
  Country: None (occurrence: None)
  Receive Date: 20110310
  Receipt Date: 20110307
  Transmission Date: 20110831
  Serious: Yes (Hospitalization, Disabling, Other)
  Sender: FDA-Public Use
  Company Number: US-PFIZER INC-2010181776

PATIENT
  Sex: Female

DRUGS (6)
  1. CELEXA [Concomitant]
     Indication: DEPRESSION
     Dosage: UNK
     Dates: start: 20060101
  2. HYDROCODONE [Concomitant]
     Indication: PAIN
     Dosage: UNK
     Dates: start: 20030101, end: 20100101
  3. CHANTIX [Suspect]
     Indication: SMOKING CESSATION THERAPY
     Dosage: 0.5MG/1MG
     Dates: start: 20070101, end: 20080101
  4. OXYCODONE [Concomitant]
     Indication: PAIN
     Dosage: UNK
     Dates: start: 20030101, end: 20100101
  5. XANAX [Concomitant]
     Indication: ANXIETY
     Dosage: UNK
     Dates: start: 20060101
  6. AMBIEN [Concomitant]
     Indication: SLEEP DISORDER
     Dosage: UNK
     Dates: start: 20050101

REACTIONS (8)
  - SUICIDE ATTEMPT [None]
  - POST-TRAUMATIC STRESS DISORDER [None]
  - AGGRESSION [None]
  - AGITATION [None]
  - DEPRESSION [None]
  - INSOMNIA [None]
  - ANXIETY [None]
  - INTENTIONAL OVERDOSE [None]
